FAERS Safety Report 24350154 (Version 1)
Quarter: 2024Q3

REPORT INFORMATION
  Report Type: Spontaneous
  Country: US (occurrence: None)
  Receive Date: 20240921
  Receipt Date: 20240921
  Transmission Date: 20241017
  Serious: Yes (Hospitalization)
  Sender: Public
  Company Number: None

PATIENT
  Age: 35 Month
  Sex: Male
  Weight: 17.8 kg

DRUGS (5)
  1. CALASPARGASE PEGOL-MKNL [Suspect]
     Active Substance: CALASPARGASE PEGOL-MKNL
     Dates: end: 20240223
  2. CYTARABINE [Suspect]
     Active Substance: CYTARABINE
     Dates: end: 20240219
  3. DEXAMETHASONE [Suspect]
     Active Substance: DEXAMETHASONE
     Dates: end: 20240318
  4. METHOTREXATE [Suspect]
     Active Substance: METHOTREXATE
     Dates: end: 20240319
  5. VINCRISTINE SULFATE [Suspect]
     Active Substance: VINCRISTINE SULFATE
     Dates: end: 20240312

REACTIONS (2)
  - Pyrexia [None]
  - White blood cell count abnormal [None]

NARRATIVE: CASE EVENT DATE: 20240326
